FAERS Safety Report 5376372-0 (Version None)
Quarter: 2007Q2

REPORT INFORMATION
  Report Type: 
  Country: None (occurrence: None)
  Receive Date: 20070627
  Receipt Date: 20070627
  Transmission Date: 20071010
  Serious: No
  Sender: FDA-Public Use
  Company Number: None

PATIENT
  Age: 39 Year
  Sex: Female
  Weight: 61.7799 kg

DRUGS (1)
  1. PROHANCE [Suspect]
     Indication: NUCLEAR MAGNETIC RESONANCE IMAGING
     Dosage: 13 ML IV X 2 DOSES
     Route: 042
     Dates: start: 20041115

REACTIONS (3)
  - DIZZINESS [None]
  - RESPIRATORY RATE INCREASED [None]
  - URTICARIA [None]
